FAERS Safety Report 15210241 (Version 1)
Quarter: 2018Q3

REPORT INFORMATION
  Report Type: Report from Study
  Country: DE (occurrence: DE)
  Receive Date: 20180727
  Receipt Date: 20180727
  Transmission Date: 20181010
  Serious: Yes (Hospitalization)
  Sender: FDA-Public Use
  Company Number: DE-TEVA-2018-DE-931181

PATIENT
  Age: 68 Year
  Sex: Female

DRUGS (8)
  1. KINERET [Concomitant]
     Active Substance: ANAKINRA
     Route: 065
     Dates: start: 201311, end: 201401
  2. ORENCIA [Concomitant]
     Active Substance: ABATACEPT
     Route: 065
     Dates: start: 201012, end: 201205
  3. ENBREL [Concomitant]
     Active Substance: ETANERCEPT
     Route: 065
     Dates: start: 200903, end: 200909
  4. KINERET [Concomitant]
     Active Substance: ANAKINRA
     Route: 065
     Dates: start: 201205, end: 201301
  5. LEFLUNOMIDE. [Suspect]
     Active Substance: LEFLUNOMIDE
     Indication: PRODUCT USED FOR UNKNOWN INDICATION
     Route: 065
  6. MABTHERA [Suspect]
     Active Substance: RITUXIMAB
     Indication: RHEUMATOID ARTHRITIS
     Dosage: FORM: INFUSION.
     Route: 065
     Dates: start: 20080626, end: 20080710
  7. HUMIRA [Concomitant]
     Active Substance: ADALIMUMAB
     Route: 065
     Dates: start: 200909
  8. SIMPONI [Concomitant]
     Active Substance: GOLIMUMAB
     Route: 065
     Dates: start: 201304, end: 201306

REACTIONS (3)
  - Arthritis [Unknown]
  - Parotitis [Unknown]
  - Diarrhoea [Unknown]
